FAERS Safety Report 9763146 (Version 1)
Quarter: 2013Q4

REPORT INFORMATION
  Report Type: Spontaneous
  Country: US (occurrence: US)
  Receive Date: 20131216
  Receipt Date: 20131216
  Transmission Date: 20140711
  Serious: No
  Sender: FDA-Public Use
  Company Number: US-BIOGENIDEC-2013BI104376

PATIENT
  Sex: Female

DRUGS (10)
  1. TECFIDERA [Suspect]
     Indication: MULTIPLE SCLEROSIS
     Route: 048
     Dates: start: 20130918
  2. AMPYRA [Concomitant]
  3. LIPITOR [Concomitant]
  4. NIACIN [Concomitant]
  5. NIASPAN [Concomitant]
  6. PROVIGIL [Concomitant]
  7. VITAMIN B1 [Concomitant]
  8. VITAMIN B12 [Concomitant]
  9. VITAMIN D2 [Concomitant]
  10. WELLBUTRIN [Concomitant]

REACTIONS (1)
  - Abdominal discomfort [Unknown]
